FAERS Safety Report 17453250 (Version 1)
Quarter: 2020Q1

REPORT INFORMATION
  Report Type: Spontaneous
  Country: US (occurrence: US)
  Receive Date: 20200224
  Receipt Date: 20200224
  Transmission Date: 20200409
  Serious: No
  Sender: FDA-Public Use
  Company Number: US-PERRIGO-19US003520

PATIENT
  Age: 71 Year
  Sex: Female
  Weight: 81.63 kg

DRUGS (2)
  1. LOPERAMIDE HYDROCHLORIDE. [Suspect]
     Active Substance: LOPERAMIDE HYDROCHLORIDE
     Indication: DIARRHOEA
     Dosage: 4 MG ONCE AFTER 1ST LOOSE STOOL, 2 MG ONCE AFTER 1 SUBSEQUENT LOOSE STOOL, PRN
     Route: 048
     Dates: start: 201803
  2. PROBIOTICS NOS [Concomitant]
     Active Substance: PROBIOTICS NOS
     Indication: ROUTINE HEALTH MAINTENANCE
     Dosage: UNK
     Route: 048
     Dates: start: 2018

REACTIONS (1)
  - Expired product administered [Unknown]

NARRATIVE: CASE EVENT DATE: 201811
